FAERS Safety Report 20207938 (Version 1)
Quarter: 2021Q4

REPORT INFORMATION
  Report Type: Spontaneous
  Country: US (occurrence: None)
  Receive Date: 20211220
  Receipt Date: 20211220
  Transmission Date: 20220303
  Serious: No
  Sender: FDA-Public Use
  Company Number: None

PATIENT
  Age: 53 Year
  Sex: Male
  Weight: 83.7 kg

DRUGS (2)
  1. VANCOMYCIN [Suspect]
     Active Substance: VANCOMYCIN
     Indication: Bacteraemia
     Dosage: FREQUENCY : TWICE A DAY;?
     Route: 042
     Dates: start: 20211130, end: 20211213
  2. VANCOMYCIN [Suspect]
     Active Substance: VANCOMYCIN
     Indication: Pyelonephritis

REACTIONS (4)
  - Pruritus [None]
  - Rash [None]
  - Red man syndrome [None]
  - Pain [None]

NARRATIVE: CASE EVENT DATE: 20211213
